FAERS Safety Report 10914059 (Version 1)
Quarter: 2015Q1

REPORT INFORMATION
  Report Type: Spontaneous
  Country: FR (occurrence: FR)
  Receive Date: 20150313
  Receipt Date: 20150313
  Transmission Date: 20150721
  Serious: Yes (Hospitalization, Other)
  Sender: FDA-Public Use
  Company Number: US-ASTRAZENECA-2015SE22963

PATIENT
  Age: 61 Year
  Sex: Female
  Weight: 125 kg

DRUGS (6)
  1. LASILIX [Suspect]
     Active Substance: FUROSEMIDE
     Indication: OEDEMA PERIPHERAL
     Route: 048
     Dates: end: 20141229
  2. ALLOPURINOL. [Concomitant]
     Active Substance: ALLOPURINOL
  3. COKENZEN [Suspect]
     Active Substance: CANDESARTAN CILEXETIL\HYDROCHLOROTHIAZIDE
     Indication: HYPERTENSION
     Dosage: UNK
     Route: 048
     Dates: start: 2010, end: 20141229
  4. LERCAN [Concomitant]
     Active Substance: LERCANIDIPINE
  5. KARDEGIC [Concomitant]
     Active Substance: ASPIRIN LYSINE
  6. FENOFIBRATE. [Concomitant]
     Active Substance: FENOFIBRATE

REACTIONS (1)
  - Acute kidney injury [Recovering/Resolving]

NARRATIVE: CASE EVENT DATE: 20141224
